FAERS Safety Report 10384045 (Version 1)
Quarter: 2014Q3

REPORT INFORMATION
  Report Type: Spontaneous
  Country: US (occurrence: None)
  Receive Date: 20140813
  Receipt Date: 20140813
  Transmission Date: 20150326
  Serious: Yes (Life-Threatening)
  Sender: FDA-Public Use
  Company Number: None

PATIENT
  Age: 66 Year
  Sex: Female

DRUGS (1)
  1. ENBREL [Suspect]
     Active Substance: ETANERCEPT
     Indication: RHEUMATOID ARTHRITIS
     Route: 058
     Dates: start: 20140711

REACTIONS (6)
  - Blood magnesium decreased [None]
  - Vomiting [None]
  - Weight decreased [None]
  - Blood chloride decreased [None]
  - Blood potassium decreased [None]
  - Diarrhoea [None]

NARRATIVE: CASE EVENT DATE: 20140711
